FAERS Safety Report 11049392 (Version 1)
Quarter: 2015Q2

REPORT INFORMATION
  Report Type: Spontaneous
  Country: BR (occurrence: BR)
  Receive Date: 20150420
  Receipt Date: 20150420
  Transmission Date: 20150821
  Serious: Yes (Hospitalization)
  Sender: FDA-Public Use
  Company Number: BR-B.I. PHARMACEUTICALS,INC./RIDGEFIELD-2015-BI-20232BR

PATIENT
  Age: 70 Year
  Sex: Female

DRUGS (10)
  1. OXALATO DE ESCITALOPRAM [Concomitant]
     Indication: DEPRESSION
     Dosage: 20 MG
     Route: 048
     Dates: start: 201412
  2. TRICONIL [Concomitant]
     Indication: HYPOGLYCAEMIA
     Dosage: 15 MG
     Route: 048
  3. LOZEPREL [Concomitant]
     Active Substance: OMEPRAZOLE
     Indication: PROPHYLAXIS
     Dosage: 20 MG
     Route: 048
     Dates: start: 201412
  4. CLONAZEPAN [Concomitant]
     Active Substance: CLONAZEPAM
     Indication: INSOMNIA
     Dosage: 2 MG
     Route: 048
     Dates: start: 201412
  5. COMBIROM [Concomitant]
     Indication: ANAEMIA
     Dosage: 120 MG
     Route: 048
     Dates: start: 201412
  6. ATORVASTATINA [Concomitant]
     Active Substance: ATORVASTATIN
     Indication: BLOOD CHOLESTEROL INCREASED
     Dosage: 40 MG
     Route: 048
     Dates: start: 201412
  7. LOSARTANA [Concomitant]
     Active Substance: LOSARTAN
     Indication: HYPERTENSION
     Dosage: 50 MG
     Route: 048
     Dates: start: 201412
  8. CLORIDRATO DE METFORMINA [Concomitant]
     Indication: HYPOGLYCAEMIA
     Dosage: 2550 MG
     Route: 048
  9. SOMALGIN CARDIO [Concomitant]
     Active Substance: ASPIRIN\DIHYDROXYALUMINUM AMINOACETATE ANHYDROUS\MAGNESIUM CARBONATE
     Indication: ANTICOAGULANT THERAPY
     Dosage: 300 MG
     Route: 048
     Dates: start: 201412
  10. TRADJENTA [Suspect]
     Active Substance: LINAGLIPTIN
     Indication: HYPOGLYCAEMIA
     Dosage: 5 MG
     Route: 048
     Dates: start: 20150406, end: 20150409

REACTIONS (4)
  - Skin discolouration [Recovered/Resolved]
  - Eye movement disorder [Recovered/Resolved]
  - Seizure [Recovered/Resolved]
  - Musculoskeletal stiffness [Recovered/Resolved]

NARRATIVE: CASE EVENT DATE: 20150409
